FAERS Safety Report 4386882-0 (Version None)
Quarter: 2004Q2

REPORT INFORMATION
  Report Type: 
  Country: None (occurrence: None)
  Receive Date: 20040623
  Receipt Date: 20040604
  Transmission Date: 20050107
  Serious: Yes (Other)
  Sender: FDA-Public Use
  Company Number: USA030434572

PATIENT
  Age: 70 Year
  Sex: Female
  Weight: 55 kg

DRUGS (4)
  1. FORTEO [Suspect]
     Indication: OSTEOPOROSIS
     Dosage: 20 UG/1 DAY
     Dates: start: 20030401, end: 20040316
  2. VITAMIN D [Concomitant]
  3. AVAPRO [Concomitant]
  4. LORAZEPAM [Concomitant]

REACTIONS (20)
  - ABNORMAL SENSATION IN EYE [None]
  - AORTIC DISORDER [None]
  - ARTERIAL STENOSIS [None]
  - ASTHENIA [None]
  - CONDITION AGGRAVATED [None]
  - CONSTIPATION [None]
  - DIFFICULTY IN WALKING [None]
  - EAR PAIN [None]
  - FATIGUE [None]
  - GAIT DISTURBANCE [None]
  - HEADACHE [None]
  - HERPES ZOSTER [None]
  - INJECTION SITE ERYTHEMA [None]
  - INJECTION SITE HAEMORRHAGE [None]
  - NERVOUSNESS [None]
  - NEURALGIA [None]
  - PHARMACEUTICAL PRODUCT COMPLAINT [None]
  - PHARYNGOLARYNGEAL PAIN [None]
  - VASCULAR CALCIFICATION [None]
  - VISION BLURRED [None]
